FAERS Safety Report 8603527-1 (Version None)
Quarter: 2012Q3

REPORT INFORMATION
  Report Type: 
  Country: None (occurrence: None)
  Receive Date: 20120817
  Receipt Date: 20120813
  Transmission Date: 20120928
  Serious: Yes (Other)
  Sender: FDA-Public Use
  Company Number: US-PFIZER INC-2012111063

PATIENT
  Age: 77 Year
  Sex: Female
  Weight: 86.168 kg

DRUGS (9)
  1. TYLENOL [Suspect]
     Indication: PAIN IN EXTREMITY
     Dosage: UNK
     Dates: start: 20120101, end: 20120101
  2. GABAPENTIN [Suspect]
     Indication: FIBROMYALGIA
     Dosage: UNK
  3. TOPROL-XL [Concomitant]
     Indication: BLOOD CHOLESTEROL INCREASED
     Dosage: 50 MG, DAILY
  4. LIPITOR [Concomitant]
     Indication: HYPERTENSION
     Dosage: 10 MG, DAILY
  5. DEXILANT [Concomitant]
     Indication: GASTROOESOPHAGEAL REFLUX DISEASE
     Dosage: UNK
  6. NEURONTIN [Suspect]
     Indication: FIBROMYALGIA
     Dosage: 400 MG, 3X/DAY
  7. NEURONTIN [Suspect]
     Dosage: UNK
     Dates: end: 20120101
  8. GABAPENTIN [Suspect]
     Dosage: 400 MG, 2X/DAY
     Dates: start: 20120809
  9. TEMAZEPAM [Concomitant]
     Dosage: UNK

REACTIONS (8)
  - PULMONARY THROMBOSIS [None]
  - DRUG INEFFECTIVE [None]
  - TREMOR [None]
  - HEADACHE [None]
  - PAIN [None]
  - MALAISE [None]
  - ABDOMINAL DISCOMFORT [None]
  - NAUSEA [None]
